FAERS Safety Report 8303559-7 (Version None)
Quarter: 2012Q2

REPORT INFORMATION
  Report Type: 
  Country: None (occurrence: None)
  Receive Date: 20120423
  Receipt Date: 20120416
  Transmission Date: 20120825
  Serious: Yes (Hospitalization)
  Sender: FDA-Public Use
  Company Number: US-BAYER-2011-122106

PATIENT
  Age: 22 Year
  Sex: Female
  Weight: 117.9 kg

DRUGS (3)
  1. YASMIN [Suspect]
     Dosage: UNK
     Dates: start: 20030101, end: 20050101
  2. IBUPROFEN [Concomitant]
     Dosage: UNK UNK, PRN
  3. ANTI-ASTHMATICS [Concomitant]
     Dosage: UNK UNK, PRN

REACTIONS (12)
  - ABDOMINAL DISCOMFORT [None]
  - MALAISE [None]
  - ASTHENIA [None]
  - BILIARY DYSKINESIA [None]
  - GENERAL PHYSICAL HEALTH DETERIORATION [None]
  - HEADACHE [None]
  - EMOTIONAL DISTRESS [None]
  - ANXIETY [None]
  - ANHEDONIA [None]
  - GALLBLADDER INJURY [None]
  - PAIN [None]
  - ABDOMINAL PAIN UPPER [None]
